FAERS Safety Report 19372888 (Version 1)
Quarter: 2021Q2

REPORT INFORMATION
  Report Type: Spontaneous
  Country: US (occurrence: US)
  Receive Date: 20210603
  Receipt Date: 20210603
  Transmission Date: 20210717
  Serious: Yes (Hospitalization)
  Sender: FDA-Public Use
  Company Number: US-MYLANLABS-2021M1032032

PATIENT
  Age: 13 Year
  Sex: Female

DRUGS (6)
  1. IMMUNOGLOBULIN                     /07494701/ [Suspect]
     Active Substance: IMMUNE GLOBULIN NOS
     Indication: BACTERIAL INFECTION
     Dosage: UNK
     Route: 042
  2. DOXYCYCLINE. [Suspect]
     Active Substance: DOXYCYCLINE
     Indication: BACTERIAL INFECTION
     Dosage: UNK
     Route: 065
  3. DOXYCYCLINE. [Suspect]
     Active Substance: DOXYCYCLINE
     Indication: LYMPHADENITIS
  4. DUPILUMAB [Suspect]
     Active Substance: DUPILUMAB
     Indication: LYMPHADENITIS
     Dosage: 300 MILLIGRAM,  EVERY OTHER WEEK
     Route: 065
  5. IMMUNOGLOBULIN                     /07494701/ [Suspect]
     Active Substance: IMMUNE GLOBULIN NOS
     Indication: LYMPHADENITIS
  6. DUPILUMAB [Suspect]
     Active Substance: DUPILUMAB
     Indication: BACTERIAL INFECTION
     Dosage: 600 MILLIGRAM
     Route: 065

REACTIONS (1)
  - Drug ineffective [Unknown]
